FAERS Safety Report 5709493-0 (Version None)
Quarter: 2008Q2

REPORT INFORMATION
  Report Type: 
  Country: None (occurrence: None)
  Receive Date: 20080417
  Receipt Date: 20080417
  Transmission Date: 20081010
  Serious: Yes (Other)
  Sender: FDA-Public Use
  Company Number: None

PATIENT
  Age: 15 Year
  Sex: Male
  Weight: 49.4421 kg

DRUGS (2)
  1. SOTRET [Suspect]
     Indication: ACNE
     Dosage: 30MG ONE BID PO
     Route: 048
     Dates: start: 20070914, end: 20071025
  2. SOTRET [Suspect]
     Indication: SCAR
     Dosage: 30MG ONE BID PO
     Route: 048
     Dates: start: 20070914, end: 20071025

REACTIONS (1)
  - RHABDOMYOLYSIS [None]
